FAERS Safety Report 5346061-7 (Version None)
Quarter: 2007Q2

REPORT INFORMATION
  Report Type: 
  Country: None (occurrence: None)
  Receive Date: 20070605
  Receipt Date: 20070531
  Transmission Date: 20071010
  Serious: Yes (Disabling, Other)
  Sender: FDA-Public Use
  Company Number: US-MERCK-0609USA01224

PATIENT
  Age: 70 Year
  Sex: Female
  Weight: 63 kg

DRUGS (10)
  1. FOSAMAX [Suspect]
     Indication: OSTEOPOROSIS
     Route: 048
     Dates: start: 20001201, end: 20050101
  2. ALTACE [Concomitant]
     Route: 065
     Dates: start: 20001201
  3. NORVASC [Concomitant]
     Route: 065
     Dates: start: 20020401
  4. CALTRATE [Concomitant]
     Route: 065
  5. LIPITOR [Concomitant]
     Route: 065
  6. LIPITOR [Concomitant]
     Route: 065
     Dates: start: 20050101
  7. PREMPRO [Concomitant]
     Route: 065
     Dates: start: 19991101, end: 20000101
  8. PHENAZOPYRIDINE HYDROCHLORIDE [Concomitant]
     Route: 065
     Dates: start: 20021001
  9. LEVAQUIN [Concomitant]
     Route: 065
     Dates: start: 20030101
  10. CENTRUM [Concomitant]
     Route: 065

REACTIONS (8)
  - ATRIOVENTRICULAR BLOCK SECOND DEGREE [None]
  - DIVERTICULUM [None]
  - EPIDERMAL NECROSIS [None]
  - NODULE [None]
  - OSTEONECROSIS [None]
  - SEBORRHOEIC KERATOSIS [None]
  - URINARY TRACT INFECTION [None]
  - UTERINE DISORDER [None]
